FAERS Safety Report 24264591 (Version 1)
Quarter: 2024Q3

REPORT INFORMATION
  Report Type: Spontaneous
  Country: US (occurrence: US)
  Receive Date: 20240829
  Receipt Date: 20240829
  Transmission Date: 20241017
  Serious: No
  Sender: SANDOZ
  Company Number: US-SANDOZ-SDZ2024US076013

PATIENT
  Age: 68 Year
  Sex: Male

DRUGS (1)
  1. ZOFRAN [Suspect]
     Active Substance: ONDANSETRON HYDROCHLORIDE
     Indication: Nausea
     Dosage: 8 MG, PRN, DISINTEGRATING
     Route: 048
     Dates: start: 20240603

REACTIONS (5)
  - Prostatic specific antigen abnormal [Unknown]
  - White blood cell count abnormal [Unknown]
  - Red blood cell count [Unknown]
  - Haemoglobin abnormal [Unknown]
  - Haematocrit abnormal [Unknown]

NARRATIVE: CASE EVENT DATE: 20240603
